FAERS Safety Report 17521509 (Version 1)
Quarter: 2020Q1

REPORT INFORMATION
  Report Type: Spontaneous
  Country: ES (occurrence: ES)
  Receive Date: 20200310
  Receipt Date: 20200310
  Transmission Date: 20200409
  Serious: Yes (Hospitalization)
  Sender: FDA-Public Use
  Company Number: ES-009507513-2003ESP000511

PATIENT
  Age: 90 Year
  Sex: Male

DRUGS (5)
  1. LANSOPRAZOLE. [Concomitant]
     Active Substance: LANSOPRAZOLE
     Indication: ABDOMINAL PAIN
     Dosage: 30 MILLIGRAM, QD, 56 CAPSULES
     Route: 048
     Dates: start: 20190220
  2. ADIRO [Concomitant]
     Active Substance: ASPIRIN
     Indication: CEREBROVASCULAR DISORDER
     Dosage: 100 MILLIGRAM, QD
     Route: 048
     Dates: start: 20180426
  3. CEFTOLOZANE SULFATE  (+) TAZOBACTAM SODIUM [Suspect]
     Active Substance: CEFTOLOZANE SULFATE\TAZOBACTAM SODIUM
     Indication: URINARY TRACT INFECTION
     Dosage: 1 TOTAL
     Route: 042
     Dates: start: 20190502, end: 20190502
  4. TAMSULOSIN HYDROCHLORIDE. [Concomitant]
     Active Substance: TAMSULOSIN HYDROCHLORIDE
     Indication: BENIGN PROSTATIC HYPERPLASIA
     Dosage: 0.4 MILLIGRAM, QD, 30 CAPSULES MODIFIED RELEASE
     Route: 048
     Dates: start: 20160825
  5. VILDAGLIPTIN [Concomitant]
     Active Substance: VILDAGLIPTIN
     Indication: DIABETES MELLITUS
     Dosage: 56 TABLETS
     Route: 048
     Dates: start: 20190404

REACTIONS (2)
  - Product prescribing error [Recovered/Resolved]
  - Hypertransaminasaemia [Recovered/Resolved]

NARRATIVE: CASE EVENT DATE: 20190503
